FAERS Safety Report 12242689 (Version 1)
Quarter: 2016Q2

REPORT INFORMATION
  Report Type: Spontaneous
  Country: US (occurrence: US)
  Receive Date: 20160406
  Receipt Date: 20160406
  Transmission Date: 20160815
  Serious: No
  Sender: FDA-Public Use
  Company Number: US-BAYER-2016-065092

PATIENT
  Age: 60 Year
  Sex: Female
  Weight: 79.37 kg

DRUGS (3)
  1. CLARITIN [Suspect]
     Active Substance: LORATADINE
     Indication: SEASONAL ALLERGY
     Dosage: 1 DF, QD(EVERY 24 HOURS)
     Route: 048
  2. CLARITIN [Suspect]
     Active Substance: LORATADINE
     Indication: SEASONAL ALLERGY
     Dosage: EXTRA DOSE
     Route: 048
     Dates: start: 20160404, end: 20160404
  3. TYLENOL SINUS [CHLORPHENAMINE MALEATE,PARACETAMOL,PSEUDOEPHEDRINE [Concomitant]
     Dosage: UNK UNK, PRN

REACTIONS (1)
  - Extra dose administered [None]

NARRATIVE: CASE EVENT DATE: 20160404
